FAERS Safety Report 25031690 (Version 2)
Quarter: 2025Q1

REPORT INFORMATION
  Report Type: Spontaneous
  Country: US (occurrence: US)
  Receive Date: 20250303
  Receipt Date: 20250304
  Transmission Date: 20250408
  Serious: No
  Sender: PFIZER
  Company Number: US-PFIZER INC-202500044402

PATIENT
  Age: 70 Year
  Sex: Female

DRUGS (1)
  1. PIROXICAM [Suspect]
     Active Substance: PIROXICAM

REACTIONS (1)
  - Drug ineffective [Unknown]
